FAERS Safety Report 15131660 (Version 1)
Quarter: 2018Q3

REPORT INFORMATION
  Report Type: Spontaneous
  Country: DE (occurrence: DE)
  Receive Date: 20180711
  Receipt Date: 20180711
  Transmission Date: 20181010
  Serious: Yes (Disabling, Other)
  Sender: FDA-Public Use
  Company Number: DE-MYLANLABS-2018M1004984

PATIENT
  Age: 76 Year
  Sex: Female
  Weight: 71 kg

DRUGS (5)
  1. IBANDRONATE [Suspect]
     Active Substance: IBANDRONATE SODIUM
     Indication: OSTEOPOROSIS
     Dosage: 3 MG, 3 MONTH
     Route: 042
     Dates: start: 2009, end: 2014
  2. DENOSUMAB [Interacting]
     Active Substance: DENOSUMAB
     Indication: OSTEOPOROSIS
     Dosage: 60 MG, 6 MONTH
     Route: 058
     Dates: start: 2014, end: 2015
  3. IBANDRONATE [Suspect]
     Active Substance: IBANDRONATE SODIUM
     Dosage: 3 MG, QMO
     Route: 042
     Dates: start: 2009, end: 2014
  4. DENOSUMAB [Interacting]
     Active Substance: DENOSUMAB
     Dosage: 60 MG, MONTHLY QMO
     Route: 058
     Dates: start: 20140101, end: 20150101
  5. DENOSUMAB [Interacting]
     Active Substance: DENOSUMAB
     Dosage: 60 MG, QMO,1 MONTH
     Route: 058
     Dates: start: 2015

REACTIONS (2)
  - Drug interaction [Unknown]
  - Osteonecrosis of jaw [Unknown]

NARRATIVE: CASE EVENT DATE: 20150201
